FAERS Safety Report 7569113-X (Version None)
Quarter: 2011Q2

REPORT INFORMATION
  Report Type: 
  Country: None (occurrence: None)
  Receive Date: 20110623
  Receipt Date: 20110620
  Transmission Date: 20111010
  Serious: Yes (Other)
  Sender: FDA-Public Use
  Company Number: US-CTI_01363_2011

PATIENT
  Age: 44 Year
  Sex: Female

DRUGS (3)
  1. ZANAFLEX [Concomitant]
     Indication: INSOMNIA
     Dosage: DF
     Route: 048
  2. ZYFLO CR [Suspect]
     Indication: ASTHMA
     Route: 048
     Dates: start: 20110603, end: 20110608
  3. ZANAFLEX [Concomitant]
     Indication: FIBROMYALGIA
     Dosage: DF
     Route: 048

REACTIONS (9)
  - WHEEZING [None]
  - PRODUCT QUALITY ISSUE [None]
  - HEADACHE [None]
  - DRUG INEFFECTIVE [None]
  - SOMNOLENCE [None]
  - FEELING ABNORMAL [None]
  - ASTHENIA [None]
  - LETHARGY [None]
  - ABNORMAL DREAMS [None]
